FAERS Safety Report 23096798 (Version 2)
Quarter: 2023Q4

REPORT INFORMATION
  Report Type: Spontaneous
  Country: CN (occurrence: CN)
  Receive Date: 20231023
  Receipt Date: 20231029
  Transmission Date: 20240110
  Serious: Yes (Other)
  Sender: FDA-Public Use
  Company Number: CN-002147023-NVSC2023CN226186

PATIENT
  Age: 31 Year
  Sex: Male
  Weight: 74 kg

DRUGS (2)
  1. EVEROLIMUS [Suspect]
     Active Substance: EVEROLIMUS
     Indication: Targeted cancer therapy
     Dosage: 5 MG, QD
     Route: 048
     Dates: start: 20230928, end: 20231012
  2. LENVATINIB MESYLATE [Suspect]
     Active Substance: LENVATINIB MESYLATE
     Indication: Targeted cancer therapy
     Dosage: 8 MG, QD
     Route: 048
     Dates: start: 20230928, end: 20231012

REACTIONS (1)
  - Hepatic function abnormal [Recovered/Resolved]

NARRATIVE: CASE EVENT DATE: 20231002
